FAERS Safety Report 12282390 (Version 1)
Quarter: 2016Q2

REPORT INFORMATION
  Report Type: Report from Study
  Country: RO (occurrence: RO)
  Receive Date: 20160419
  Receipt Date: 20160419
  Transmission Date: 20160815
  Serious: Yes (Hospitalization)
  Sender: FDA-Public Use
  Company Number: PHHY2012RO102639

PATIENT
  Age: 74 Year
  Sex: Male

DRUGS (6)
  1. TAMSOL [Concomitant]
     Indication: PROSTATIC ADENOMA
     Dosage: 2 DF, QD
     Route: 048
  2. LINISAN [Concomitant]
     Indication: PRODUCT USED FOR UNKNOWN INDICATION
     Dosage: 1 CP, QD
     Route: 065
  3. CARBIDOPA,ENTACAPONE,LEVODOPA [Suspect]
     Active Substance: CARBIDOPA\ENTACAPONE\LEVODOPA
     Indication: PARKINSON^S DISEASE
     Dosage: 4 DF (150/37.5/200 MG)
     Route: 048
     Dates: start: 20121027
  4. SERETIDE [Concomitant]
     Active Substance: FLUTICASONE PROPIONATE\SALMETEROL XINAFOATE
     Indication: ASTHMA
     Dosage: 1 DF, BID
     Route: 055
  5. RIVOTRIL [Concomitant]
     Active Substance: CLONAZEPAM
     Indication: DEPRESSION
     Dosage: 2 DF, QD
     Route: 048
  6. SERMION [Concomitant]
     Active Substance: NICERGOLINE
     Indication: VERTIGO
     Dosage: 30 MG, QD
     Route: 048
     Dates: start: 201301

REACTIONS (1)
  - Psychomotor hyperactivity [Recovered/Resolved]

NARRATIVE: CASE EVENT DATE: 20121101
